FAERS Safety Report 19835015 (Version 1)
Quarter: 2021Q3

REPORT INFORMATION
  Report Type: Spontaneous
  Country: GB (occurrence: GB)
  Receive Date: 20210915
  Receipt Date: 20210915
  Transmission Date: 20211014
  Serious: Yes (Life-Threatening, Other)
  Sender: FDA-Public Use
  Company Number: GB-ABBVIE-21K-167-4077990-00

PATIENT
  Age: 18 Year
  Sex: Female

DRUGS (2)
  1. DEPAKOTE [Suspect]
     Active Substance: DIVALPROEX SODIUM
     Indication: ANALGESIC THERAPY
     Route: 065
  2. TOPAMAX [Suspect]
     Active Substance: TOPIRAMATE
     Indication: ANALGESIC THERAPY
     Route: 065

REACTIONS (2)
  - Near death experience [Unknown]
  - Off label use [Unknown]
